FAERS Safety Report 9246297 (Version 1)
Quarter: 2013Q2

REPORT INFORMATION
  Report Type: Spontaneous
  Country: CA (occurrence: CA)
  Receive Date: 20130422
  Receipt Date: 20130422
  Transmission Date: 20140414
  Serious: Yes (Other)
  Sender: FDA-Public Use
  Company Number: CA-ASTRAZENECA-2013SE25207

PATIENT
  Age: 519 Month
  Sex: Female

DRUGS (1)
  1. NEXIUM [Suspect]
     Indication: GASTRIC DISORDER
     Dosage: BID
     Route: 048
     Dates: start: 201206

REACTIONS (1)
  - Hepatic pain [Not Recovered/Not Resolved]
